FAERS Safety Report 6406460-9 (Version None)
Quarter: 2009Q4

REPORT INFORMATION
  Report Type: 
  Country: None (occurrence: None)
  Receive Date: 20091014
  Receipt Date: 20090930
  Transmission Date: 20100525
  Serious: Yes (Hospitalization)
  Sender: FDA-Public Use
  Company Number: 2009AC000095

PATIENT
  Age: 52 Year
  Sex: Female

DRUGS (60)
  1. DIGOXIN [Suspect]
     Dosage: 0.125 MG, PO
     Route: 048
     Dates: start: 20020120
  2. LIDODERM [Concomitant]
  3. AZITHROMYCIN [Concomitant]
  4. LIDOCAINE [Concomitant]
  5. PROMETHAZINE [Concomitant]
  6. PROTONIX [Concomitant]
  7. LISINOPRIL [Concomitant]
  8. FUROSEMIDE [Concomitant]
  9. KLOR-CON [Concomitant]
  10. HYDROMORPHONE [Concomitant]
  11. REQUIP [Concomitant]
  12. SPIRONOLACTIN [Concomitant]
  13. BENZONATATE [Concomitant]
  14. LORAZEPAM [Concomitant]
  15. AMBIEN [Concomitant]
  16. COREG [Concomitant]
  17. AVINZA [Concomitant]
  18. CYMBALTA [Concomitant]
  19. MORPHINE SULFATE [Concomitant]
  20. CLARITIN [Concomitant]
  21. STADOL [Concomitant]
  22. AMRIX [Concomitant]
  23. CLIMARA [Concomitant]
  24. VIVELLE-DOT [Concomitant]
  25. AMOXICILLIN [Concomitant]
  26. RODEC-DM [Concomitant]
  27. POTASSIUM CHLORIDE [Concomitant]
  28. TRICOR [Concomitant]
  29. CEPHALEXIN [Concomitant]
  30. NEOMYCIN/ POLYMCI/ HYDROCORTISONE [Concomitant]
  31. MYTUSSIN [Concomitant]
  32. PHENADOZ [Concomitant]
  33. PROMETHEGAN [Concomitant]
  34. FENTANYL-100 [Concomitant]
  35. PROAIR HFA [Concomitant]
  36. BUTALBITAL ACETAMINOPHEN AND CAFFEINE [Concomitant]
  37. HYDROXYZINE [Concomitant]
  38. FLUOCINONIDE [Concomitant]
  39. ZOLPIDEM [Concomitant]
  40. PERMETHRIN [Concomitant]
  41. TRIAMCINOLONE [Concomitant]
  42. FLUTICASONE [Concomitant]
  43. CARVEDILOL [Concomitant]
  44. PREVACID [Concomitant]
  45. TRIAZOLAM [Concomitant]
  46. ATIVAN [Concomitant]
  47. BENADRYL [Concomitant]
  48. ALDACTONE [Concomitant]
  49. MULTI-VITAMIN [Concomitant]
  50. ACETAMINOPHEN [Concomitant]
  51. DILAUDID [Concomitant]
  52. ESTRADIOL [Concomitant]
  53. DEMEROL [Concomitant]
  54. NITROGLYCERIN [Concomitant]
  55. FLONASE [Concomitant]
  56. COMBIVENT [Concomitant]
  57. ALDACTONE [Concomitant]
  58. TRICOR [Concomitant]
  59. OXYCODONE [Concomitant]
  60. TEMAZEPAM [Concomitant]

REACTIONS (33)
  - ABDOMINAL ADHESIONS [None]
  - AFFECTIVE DISORDER [None]
  - ANGINA PECTORIS [None]
  - ANXIETY [None]
  - AORTIC VALVE INCOMPETENCE [None]
  - ARTERIOSCLEROSIS CORONARY ARTERY [None]
  - ASTHMA [None]
  - BUNDLE BRANCH BLOCK [None]
  - CARDIOMYOPATHY [None]
  - CHEST PAIN [None]
  - COSTOCHONDRITIS [None]
  - DEPRESSION [None]
  - DYSPAREUNIA [None]
  - EJECTION FRACTION DECREASED [None]
  - EMOTIONAL DISORDER [None]
  - FIBROMYALGIA [None]
  - GASTROOESOPHAGEAL REFLUX DISEASE [None]
  - HEADACHE [None]
  - HYPERTRIGLYCERIDAEMIA [None]
  - INJURY [None]
  - INTESTINAL OBSTRUCTION [None]
  - OBESITY [None]
  - OSTEOARTHRITIS [None]
  - OVARIAN ADHESION [None]
  - OVARIAN CYST [None]
  - PAIN [None]
  - PALPITATIONS [None]
  - PELVIC ADHESIONS [None]
  - PELVIC PAIN [None]
  - PROCEDURAL PAIN [None]
  - SALPINGECTOMY [None]
  - SALPINGITIS [None]
  - TRICUSPID VALVE INCOMPETENCE [None]
